FAERS Safety Report 5064761-3 (Version None)
Quarter: 2006Q3

REPORT INFORMATION
  Report Type: 
  Country: None (occurrence: None)
  Receive Date: 20060725
  Receipt Date: 20060714
  Transmission Date: 20061208
  Serious: Yes (Hospitalization)
  Sender: FDA-Public Use
  Company Number: 200607IM000421

PATIENT
  Age: 76 Year
  Sex: Female

DRUGS (1)
  1. ACTIMMUNE [Suspect]
     Indication: IDIOPATHIC PULMONARY FIBROSIS
     Dosage: 200 UG, TIW, SUBCUTANEOUS
     Route: 058
     Dates: start: 20060301

REACTIONS (6)
  - ARTERIAL THROMBOSIS [None]
  - ARTHRALGIA [None]
  - FALL [None]
  - HYPOAESTHESIA [None]
  - PULSE ABSENT [None]
  - SKIN DISCOLOURATION [None]
